FAERS Safety Report 8313662-3 (Version None)
Quarter: 2012Q2

REPORT INFORMATION
  Report Type: 
  Country: None (occurrence: None)
  Receive Date: 20120426
  Receipt Date: 20120423
  Transmission Date: 20120825
  Serious: No
  Sender: FDA-Public Use
  Company Number: US-PFIZER INC-2012101045

PATIENT
  Sex: Female
  Weight: 54.422 kg

DRUGS (4)
  1. GABAPENTIN [Suspect]
     Indication: MUSCULOSKELETAL STIFFNESS
     Dosage: 100 MG, 3X/DAY
     Dates: start: 20120321
  2. LORAZEPAM [Suspect]
     Indication: CONVULSION
     Dosage: UNK
  3. GABAPENTIN [Suspect]
     Dosage: 300 MG, 2X/DAY
  4. NEURONTIN [Suspect]
     Indication: MUSCULOSKELETAL STIFFNESS
     Dosage: 100 MG, 2X/DAY
     Dates: start: 20110101, end: 20120101

REACTIONS (12)
  - GASTROINTESTINAL DISORDER [None]
  - DYSPHAGIA [None]
  - EATING DISORDER [None]
  - PAIN [None]
  - GASTROINTESTINAL PAIN [None]
  - MUSCLE SPASMS [None]
  - INCORRECT DOSE ADMINISTERED [None]
  - WEIGHT DECREASED [None]
  - SOMNOLENCE [None]
  - DRUG INEFFECTIVE [None]
  - TREMOR [None]
  - FEELING ABNORMAL [None]
